FAERS Safety Report 7484353-6 (Version None)
Quarter: 2011Q1

REPORT INFORMATION
  Report Type: 
  Country: None (occurrence: None)
  Receive Date: 20110309
  Receipt Date: 20110209
  Transmission Date: 20110831
  Serious: No
  Sender: FDA-Public Use
  Company Number: 2011SP006318

PATIENT

DRUGS (1)
  1. SAPHRIS [Suspect]
     Dosage: 5 MG; QAM, 10 MG; QPM

REACTIONS (1)
  - TOOTH DISCOLOURATION [None]
